FAERS Safety Report 9781031 (Version 1)
Quarter: 2013Q4

REPORT INFORMATION
  Report Type: Spontaneous
  Country: US (occurrence: None)
  Receive Date: 20131223
  Receipt Date: 20131223
  Transmission Date: 20140711
  Serious: Yes (Hospitalization, Disabling)
  Sender: FDA-Public Use
  Company Number: None

PATIENT
  Age: 49 Year
  Sex: Female
  Weight: 40.82 kg

DRUGS (1)
  1. H.P. ACTHAR [Suspect]
     Indication: DERMATOMYOSITIS
     Dosage: GIVEN INTO/INDER THE SKIN
     Dates: start: 20130514, end: 20130705

REACTIONS (26)
  - Blood glucose increased [None]
  - Blood pressure increased [None]
  - Heart rate increased [None]
  - Asthenia [None]
  - Tremor [None]
  - Thirst [None]
  - Dry mouth [None]
  - Diarrhoea [None]
  - Dizziness [None]
  - Psychomotor hyperactivity [None]
  - Insomnia [None]
  - Hyperhidrosis [None]
  - Nausea [None]
  - Asthenia [None]
  - Vision blurred [None]
  - Dry eye [None]
  - Eye irritation [None]
  - Feeling abnormal [None]
  - Disturbance in attention [None]
  - Amnesia [None]
  - Weight fluctuation [None]
  - Fatigue [None]
  - Mood swings [None]
  - Photosensitivity reaction [None]
  - Myositis [None]
  - Dehydration [None]
